FAERS Safety Report 4860871-1 (Version None)
Quarter: 2005Q4

REPORT INFORMATION
  Report Type: 
  Country: None (occurrence: None)
  Receive Date: 20051220
  Receipt Date: 20051209
  Transmission Date: 20060501
  Serious: Yes (Other)
  Sender: FDA-Public Use
  Company Number: CA-BRISTOL-MYERS SQUIBB COMPANY-13220256

PATIENT
  Age: 69 Year
  Sex: Male

DRUGS (17)
  1. TEQUIN [Suspect]
  2. FLOMAX [Suspect]
     Route: 048
  3. AZITHROMYCIN [Concomitant]
     Route: 048
  4. CEFUROXIME [Concomitant]
  5. CLINDAMYCIN [Concomitant]
     Route: 042
  6. COMBIVENT [Concomitant]
     Route: 055
  7. DOCUSATE [Concomitant]
     Route: 048
  8. FLOVENT [Concomitant]
     Route: 055
  9. FUROSEMIDE [Concomitant]
     Route: 048
  10. HALOPERIDOL [Concomitant]
     Route: 048
  11. METFORMIN HCL [Concomitant]
  12. SENOKOT [Concomitant]
     Route: 048
  13. SPIRONOLACTONE [Concomitant]
     Route: 048
  14. TEMAZEPAM [Concomitant]
     Route: 048
  15. THEOPHYLLINE [Concomitant]
     Route: 048
  16. EXTRA STRENGTH TYLENOL [Concomitant]
     Route: 048
  17. TYLENOL W/ CODEINE NO. 3 [Concomitant]
     Route: 048

REACTIONS (2)
  - HYPERHIDROSIS [None]
  - HYPOGLYCAEMIA [None]
